FAERS Safety Report 24858604 (Version 2)
Quarter: 2025Q1

REPORT INFORMATION
  Report Type: Report from Study
  Country: US (occurrence: US)
  Receive Date: 20250118
  Receipt Date: 20250126
  Transmission Date: 20250408
  Serious: Yes (Hospitalization)
  Sender: ABBVIE
  Company Number: US-ABBVIE-6073116

PATIENT
  Age: 73 Year
  Sex: Female

DRUGS (2)
  1. SKYRIZI [Suspect]
     Active Substance: RISANKIZUMAB-RZAA
     Indication: Psoriasis
     Route: 058
  2. PREDNISONE [Concomitant]
     Active Substance: PREDNISONE
     Indication: Product used for unknown indication

REACTIONS (13)
  - Clostridium difficile infection [Recovered/Resolved]
  - Injection site haemorrhage [Recovering/Resolving]
  - Folliculitis [Unknown]
  - General symptom [Unknown]
  - Skin test positive [Unknown]
  - Dandruff [Unknown]
  - Transient acantholytic dermatosis [Recovering/Resolving]
  - Androgenetic alopecia [Recovering/Resolving]
  - Device issue [Not Recovered/Not Resolved]
  - Rash papular [Unknown]
  - Norovirus infection [Recovering/Resolving]
  - Pruritus [Not Recovered/Not Resolved]
  - Rash pruritic [Unknown]
